FAERS Safety Report 10812146 (Version 1)
Quarter: 2015Q1

REPORT INFORMATION
  Report Type: Spontaneous
  Country: FR (occurrence: None)
  Receive Date: 20150212
  Receipt Date: 20150212
  Transmission Date: 20150721
  Serious: Yes (Life-Threatening, Hospitalization)
  Sender: FDA-Public Use
  Company Number: 8003894

PATIENT
  Age: 76 Year
  Sex: Female

DRUGS (4)
  1. MIANSERIN HYDROCHLORIDE [Suspect]
     Active Substance: MIANSERIN HYDROCHLORIDE
     Indication: DEPRESSION
     Route: 048
     Dates: start: 20141205, end: 20141216
  2. LEVOTHYROX 75 (LEVOTHYROXINE SODIUM) [Suspect]
     Active Substance: LEVOTHYROXINE SODIUM
     Indication: HYPOTHYROIDISM
     Route: 048
  3. MOCLAMINE [Suspect]
     Active Substance: MOCLOBEMIDE
     Indication: DEPRESSION
     Route: 048
     Dates: start: 20141205
  4. NOCTAMIDE (LORMETAZEPAM) (TABLET EXTENDED RELEASE) (LORMETAZEPAM) [Suspect]
     Active Substance: LORMETAZEPAM
     Indication: DEPRESSION
     Route: 048
     Dates: start: 20141127

REACTIONS (1)
  - Electrocardiogram QT prolonged [None]

NARRATIVE: CASE EVENT DATE: 20141214
